FAERS Safety Report 5130344-X (Version None)
Quarter: 2006Q4

REPORT INFORMATION
  Report Type: 
  Country: None (occurrence: None)
  Receive Date: 20061019
  Receipt Date: 20061009
  Transmission Date: 20070319
  Serious: Yes (Hospitalization)
  Sender: FDA-Public Use
  Company Number: PHBS2006ES15606

PATIENT
  Age: 34 Year
  Sex: Male

DRUGS (3)
  1. VOLTAREN [Suspect]
     Dosage: 150 MG/DAY
     Route: 048
     Dates: start: 20060801, end: 20060815
  2. NOLOTIL [Suspect]
     Dosage: 1.7 G/DAY
     Route: 048
     Dates: start: 20060801, end: 20060815
  3. CLEXANE [Concomitant]
     Dosage: 40 MG/DAY
     Route: 058
     Dates: start: 20060801, end: 20060815

REACTIONS (1)
  - BONE MARROW FAILURE [None]
